FAERS Safety Report 17082590 (Version 2)
Quarter: 2025Q4

REPORT INFORMATION
  Report Type: Spontaneous
  Country: EU (occurrence: EU)
  Receive Date: 20191127
  Receipt Date: 20251001
  Transmission Date: 20260118
  Serious: Yes (Life-Threatening, Hospitalization, Other)
  Sender: MYLAN
  Company Number: EU-GLAXOSMITHKLINE-IT2019GSK113326

PATIENT
  Age: 12 Year
  Sex: Female

DRUGS (36)
  1. VANCOMYCIN [Suspect]
     Active Substance: VANCOMYCIN
     Indication: Product used for unknown indication
     Dosage: UNK
  2. VANCOMYCIN [Suspect]
     Active Substance: VANCOMYCIN
     Dosage: UNK
     Route: 065
  3. VANCOMYCIN [Suspect]
     Active Substance: VANCOMYCIN
     Dosage: UNK
     Route: 065
  4. VANCOMYCIN [Suspect]
     Active Substance: VANCOMYCIN
     Dosage: UNK
  5. MYCOPHENOLATE MOFETIL [Interacting]
     Active Substance: MYCOPHENOLATE MOFETIL
     Indication: Product used for unknown indication
     Dosage: 600 MILLIGRAM/SQ. METER
  6. MYCOPHENOLATE MOFETIL [Interacting]
     Active Substance: MYCOPHENOLATE MOFETIL
     Dosage: 600 MILLIGRAM/SQ. METER
     Route: 065
  7. MYCOPHENOLATE MOFETIL [Interacting]
     Active Substance: MYCOPHENOLATE MOFETIL
     Dosage: 600 MILLIGRAM/SQ. METER
     Route: 065
  8. MYCOPHENOLATE MOFETIL [Interacting]
     Active Substance: MYCOPHENOLATE MOFETIL
     Dosage: 600 MILLIGRAM/SQ. METER
  9. ACYCLOVIR [Suspect]
     Active Substance: ACYCLOVIR
     Indication: Product used for unknown indication
     Dosage: UNK
  10. ACYCLOVIR [Suspect]
     Active Substance: ACYCLOVIR
     Dosage: UNK
     Route: 065
  11. ACYCLOVIR [Suspect]
     Active Substance: ACYCLOVIR
     Dosage: UNK
     Route: 065
  12. ACYCLOVIR [Suspect]
     Active Substance: ACYCLOVIR
     Dosage: UNK
  13. AMIKACIN SULFATE [Suspect]
     Active Substance: AMIKACIN SULFATE
     Indication: Product used for unknown indication
     Dosage: UNK
  14. AMIKACIN SULFATE [Suspect]
     Active Substance: AMIKACIN SULFATE
     Dosage: UNK
     Route: 065
  15. AMIKACIN SULFATE [Suspect]
     Active Substance: AMIKACIN SULFATE
     Dosage: UNK
     Route: 065
  16. AMIKACIN SULFATE [Suspect]
     Active Substance: AMIKACIN SULFATE
     Dosage: UNK
  17. COLCHICINE [Interacting]
     Active Substance: COLCHICINE
     Indication: Capillary leak syndrome
     Dosage: 0.5 MILLIGRAM, QD
     Route: 065
  18. COLCHICINE [Interacting]
     Active Substance: COLCHICINE
     Dosage: 0.5 MILLIGRAM, QD
  19. COLCHICINE [Interacting]
     Active Substance: COLCHICINE
     Dosage: 0.5 MILLIGRAM, QD
  20. COLCHICINE [Interacting]
     Active Substance: COLCHICINE
     Dosage: 0.5 MILLIGRAM, QD
     Route: 065
  21. COLCHICINE [Interacting]
     Active Substance: COLCHICINE
     Dosage: 1 MILLIGRAM
     Route: 065
  22. COLCHICINE [Interacting]
     Active Substance: COLCHICINE
     Dosage: 1 MILLIGRAM
  23. COLCHICINE [Interacting]
     Active Substance: COLCHICINE
     Dosage: 1 MILLIGRAM
  24. COLCHICINE [Interacting]
     Active Substance: COLCHICINE
     Dosage: 1 MILLIGRAM
     Route: 065
  25. COLCHICINE [Interacting]
     Active Substance: COLCHICINE
     Dosage: 0.13 MILLIGRAM
     Route: 065
  26. COLCHICINE [Interacting]
     Active Substance: COLCHICINE
     Dosage: 0.13 MILLIGRAM
     Route: 065
  27. COLCHICINE [Interacting]
     Active Substance: COLCHICINE
     Dosage: 0.13 MILLIGRAM
  28. COLCHICINE [Interacting]
     Active Substance: COLCHICINE
     Dosage: 0.13 MILLIGRAM
  29. CYCLOSPORINE [Concomitant]
     Active Substance: CYCLOSPORINE
     Indication: Capillary leak syndrome
     Dosage: UNK
  30. CYCLOSPORINE [Concomitant]
     Active Substance: CYCLOSPORINE
     Dosage: UNK
     Route: 065
  31. CYCLOSPORINE [Concomitant]
     Active Substance: CYCLOSPORINE
     Dosage: UNK
     Route: 065
  32. CYCLOSPORINE [Concomitant]
     Active Substance: CYCLOSPORINE
     Dosage: UNK
  33. PREDNISONE [Concomitant]
     Active Substance: PREDNISONE
     Indication: Capillary leak syndrome
     Dosage: UNK
  34. PREDNISONE [Concomitant]
     Active Substance: PREDNISONE
     Dosage: UNK
     Route: 065
  35. PREDNISONE [Concomitant]
     Active Substance: PREDNISONE
     Dosage: UNK
     Route: 065
  36. PREDNISONE [Concomitant]
     Active Substance: PREDNISONE
     Dosage: UNK

REACTIONS (6)
  - Capillary leak syndrome [Recovered/Resolved]
  - Renal impairment [Recovered/Resolved]
  - Acute kidney injury [Recovered/Resolved]
  - Nephropathy toxic [Recovered/Resolved]
  - Leukopenia [Recovered/Resolved]
  - Drug interaction [Unknown]
